FAERS Safety Report 6526418-9 (Version None)
Quarter: 2010Q1

REPORT INFORMATION
  Report Type: 
  Country: None (occurrence: None)
  Receive Date: 20100105
  Receipt Date: 20091225
  Transmission Date: 20100710
  Serious: Yes (Hospitalization)
  Sender: FDA-Public Use
  Company Number: JP-ELI_LILLY_AND_COMPANY-JP200912005557

PATIENT
  Sex: Female
  Weight: 42.9 kg

DRUGS (11)
  1. PEMETREXED [Suspect]
     Indication: NON-SMALL CELL LUNG CANCER
     Dosage: 500 MG/M2, EVERY 3 WEEKS
     Route: 042
     Dates: start: 20091014, end: 20091217
  2. CISPLATIN [Suspect]
     Indication: NON-SMALL CELL LUNG CANCER
     Dosage: 75 MG/M2, EVERY 3 WEEKS
     Route: 042
     Dates: start: 20091014, end: 20091217
  3. AG-013736(AXITINIB) [Suspect]
     Indication: NON-SMALL CELL LUNG CANCER
     Dosage: 5 MG, 2/D
     Route: 048
     Dates: start: 20091014, end: 20091224
  4. OLMETEC [Concomitant]
     Indication: HYPERTENSION
     Dosage: UNK, UNKNOWN
     Route: 048
     Dates: start: 20091017
  5. NIFELANTERN CR [Concomitant]
     Indication: HYPERTENSION
     Dosage: UNK, UNKNOWN
     Route: 048
     Dates: start: 20091025
  6. ARTIST [Concomitant]
     Indication: HYPERTENSION
     Dosage: UNK, UNKNOWN
     Route: 048
     Dates: start: 20090730
  7. IMIGRANE [Concomitant]
     Indication: HEADACHE
     Dosage: SINCE BEFORE THE CLINICAL TRIAL
     Route: 048
  8. DEPAS [Concomitant]
     Indication: INSOMNIA
     Dosage: UNK, UNKNOWN
     Route: 048
     Dates: start: 20091003
  9. ZOFRAN ZYDIS [Concomitant]
     Indication: NAUSEA
     Dosage: UNK, UNKNOWN
     Route: 048
     Dates: start: 20091218, end: 20091219
  10. LENDORMIN [Concomitant]
     Indication: INSOMNIA
     Dosage: UNK, UNKNOWN
     Route: 048
     Dates: start: 20091216
  11. PROMAC [Concomitant]
     Indication: ABDOMINAL DISCOMFORT
     Dosage: SINCE BEFORE THE CLINICAL TRIAL
     Route: 065

REACTIONS (1)
  - DEPRESSION [None]
